FAERS Safety Report 12759883 (Version 1)
Quarter: 2016Q3

REPORT INFORMATION
  Report Type: Spontaneous
  Country: IT (occurrence: IT)
  Receive Date: 20160919
  Receipt Date: 20160919
  Transmission Date: 20161109
  Serious: Yes (Other)
  Sender: FDA-Public Use
  Company Number: IT-MYLANLABS-2016M1039460

PATIENT

DRUGS (1)
  1. ZOLMITRIPTAN MYLAN GENERICS 2.5 MG COMPRESSE RIVESTITE CON FILM [Suspect]
     Active Substance: ZOLMITRIPTAN
     Indication: MIGRAINE
     Dosage: 1 DF, PRN
     Route: 048
     Dates: start: 20150601, end: 20150901

REACTIONS (2)
  - Drug ineffective [Unknown]
  - Product substitution issue [None]

NARRATIVE: CASE EVENT DATE: 20150601
